FAERS Safety Report 7407367-0 (Version None)
Quarter: 2011Q2

REPORT INFORMATION
  Report Type: 
  Country: None (occurrence: None)
  Receive Date: 20110411
  Receipt Date: 20110328
  Transmission Date: 20111010
  Serious: Yes (Death, Other)
  Sender: FDA-Public Use
  Company Number: ES-GENENTECH-315076

PATIENT

DRUGS (3)
  1. FLUDARABINE [Suspect]
     Indication: B-CELL LYMPHOMA
     Dosage: 25 MG/M2, UNK
     Route: 042
  2. RITUXIMAB [Suspect]
     Indication: B-CELL LYMPHOMA
     Dosage: 375 MG/M2, 1/WEEK
     Route: 065
  3. CYCLOPHOSPHAMIDE [Suspect]
     Indication: B-CELL LYMPHOMA
     Dosage: 1000 MG/M2, UNK
     Route: 042

REACTIONS (19)
  - ACUTE MYELOID LEUKAEMIA [None]
  - DIARRHOEA [None]
  - CYTOMEGALOVIRUS INFECTION [None]
  - LEUKOPENIA [None]
  - CANDIDIASIS [None]
  - INTERSTITIAL LUNG DISEASE [None]
  - HERPES ZOSTER [None]
  - SEPTIC SHOCK [None]
  - INFECTION [None]
  - BACTERIAL INFECTION [None]
  - ASPERGILLOSIS [None]
  - INFLUENZA [None]
  - RESPIRATORY TRACT INFECTION [None]
  - ANAEMIA [None]
  - LYMPHOPENIA [None]
  - CEREBRAL TOXOPLASMOSIS [None]
  - MYELODYSPLASTIC SYNDROME [None]
  - NEUTROPENIA [None]
  - THROMBOCYTOPENIA [None]
